FAERS Safety Report 6884314-1 (Version None)
Quarter: 2010Q3

REPORT INFORMATION
  Report Type: 
  Country: None (occurrence: None)
  Receive Date: 20100729
  Receipt Date: 20070702
  Transmission Date: 20110219
  Serious: Yes (Hospitalization, Other)
  Sender: FDA-Public Use
  Company Number: US-PFIZER INC-2007054561

PATIENT
  Sex: Female
  Weight: 127 kg

DRUGS (2)
  1. CELEBREX [Suspect]
     Indication: OSTEOARTHRITIS
     Dates: start: 19991221, end: 20030216
  2. VIOXX [Suspect]
     Indication: OSTEOARTHRITIS
     Dosage: ONCE TO TWICE DAILY
     Dates: start: 20010409, end: 20040917

REACTIONS (1)
  - ISCHAEMIC STROKE [None]
